FAERS Safety Report 11529373 (Version 2)
Quarter: 2015Q4

REPORT INFORMATION
  Report Type: Report from Study
  Country: BR (occurrence: BR)
  Receive Date: 20150921
  Receipt Date: 20151007
  Transmission Date: 20160304
  Serious: Yes (Hospitalization)
  Sender: FDA-Public Use
  Company Number: PHHY2015BR112688

PATIENT
  Sex: Female
  Weight: 19 kg

DRUGS (1)
  1. TRILEPTAL [Suspect]
     Active Substance: OXCARBAZEPINE
     Indication: EPILEPSY
     Dosage: 7 ML (STRENGTH: 60 MG), EVERY 12 HOURS
     Route: 048

REACTIONS (2)
  - Neuromyelitis optica [Unknown]
  - Seizure [Recovering/Resolving]
